FAERS Safety Report 10213483 (Version 1)
Quarter: 2014Q2

REPORT INFORMATION
  Report Type: Spontaneous
  Country: US (occurrence: None)
  Receive Date: 20140529
  Receipt Date: 20140529
  Transmission Date: 20141212
  Serious: No
  Sender: FDA-Public Use
  Company Number: 1713747-2014-99958

PATIENT
  Sex: Male

DRUGS (3)
  1. DELFLEX 2.5 % DEX. LM/LC 5L, 2-PK [Suspect]
     Route: 033
  2. LIBERTY CYCLER [Concomitant]
  3. LIBERTY CYCLER CASSETTE [Concomitant]

REACTIONS (2)
  - Dehydration [None]
  - Medical device complication [None]
